FAERS Safety Report 24762370 (Version 1)
Quarter: 2024Q4

REPORT INFORMATION
  Report Type: Report from Study
  Country: FR (occurrence: FR)
  Receive Date: 20241221
  Receipt Date: 20241221
  Transmission Date: 20250115
  Serious: Yes (Other)
  Sender: AUROBINDO
  Company Number: FR-LMS-2024001839

PATIENT
  Age: 30 Month
  Weight: 11.4 kg

DRUGS (3)
  1. CINACALCET [Suspect]
     Active Substance: CINACALCET
     Indication: Hyperparathyroidism secondary
     Dosage: 1.3 MILLIGRAM/KILOGRAM, ONCE A DAY
     Route: 065
  2. CALCIUM [Suspect]
     Active Substance: CALCIUM
     Indication: Hyperparathyroidism secondary
     Dosage: UNK
     Route: 048
  3. ALFACALCIDOL [Concomitant]
     Active Substance: ALFACALCIDOL
     Indication: Product used for unknown indication
     Dosage: 1 MICROGRAM, ONCE A DAY
     Route: 065

REACTIONS (3)
  - Hypocalcaemic seizure [Unknown]
  - Drug ineffective [Unknown]
  - Treatment noncompliance [Unknown]
